FAERS Safety Report 4636264-9 (Version None)
Quarter: 2005Q2

REPORT INFORMATION
  Report Type: 
  Country: None (occurrence: None)
  Receive Date: 20050415
  Receipt Date: 20040421
  Transmission Date: 20051028
  Serious: No
  Sender: FDA-Public Use
  Company Number: US-BRISTOL-MYERS SQUIBB COMPANY-12567715

PATIENT
  Age: 61 Year
  Sex: Female

DRUGS (2)
  1. PARAPLATIN [Suspect]
     Dates: start: 20040317, end: 20040317
  2. TAXOL [Concomitant]
     Dates: start: 20040310, end: 20040310

REACTIONS (1)
  - ADVERSE EVENT [None]
